FAERS Safety Report 8850052 (Version 3)
Quarter: 2013Q2

REPORT INFORMATION
  Report Type: Report from Study
  Country: DE (occurrence: DE)
  Receive Date: 20121019
  Receipt Date: 20130429
  Transmission Date: 20140414
  Serious: Yes (Hospitalization)
  Sender: FDA-Public Use
  Company Number: DE-PFIZER INC-2012252705

PATIENT
  Age: 70 Year
  Sex: Male
  Weight: 69 kg

DRUGS (9)
  1. AXITINIB [Suspect]
     Indication: METASTATIC RENAL CELL CARCINOMA
     Dosage: 2 MG, 2X/DAY
     Route: 048
     Dates: start: 20090401, end: 20120601
  2. AXITINIB [Suspect]
     Dosage: 2 MG, 2X/DAY
     Route: 048
     Dates: start: 20120603
  3. PANTOZOL [Concomitant]
     Indication: PROPHYLAXIS
     Dosage: 40 MG, DAILY
     Route: 048
     Dates: start: 20090527
  4. TICAGRELOR [Concomitant]
     Indication: THROMBOSIS PROPHYLAXIS
     Dosage: 180 MG, DAILY
     Route: 048
     Dates: start: 20120224, end: 20120806
  5. CARVEDILOL [Concomitant]
     Indication: HYPERTENSION
     Dosage: 12.5 MG, DAILY
     Route: 048
     Dates: start: 20120229, end: 20120611
  6. CARVEDILOL [Concomitant]
     Dosage: 25 MG, DAILY
     Route: 048
     Dates: start: 20120612, end: 20120806
  7. SIMVASTATIN [Concomitant]
     Indication: PROPHYLAXIS
     Dosage: 40 MG, DAILY
     Route: 048
     Dates: start: 20120229, end: 20120806
  8. ASS [Concomitant]
     Indication: THROMBOSIS PROPHYLAXIS
     Dosage: 100 MG, DAILY
     Route: 048
     Dates: start: 20120229, end: 20120806
  9. TORASEMIDE [Concomitant]
     Indication: PROPHYLAXIS
     Dosage: 40 MG, DAILY
     Route: 048
     Dates: start: 20120229

REACTIONS (1)
  - Cardiac failure [Recovered/Resolved]
